FAERS Safety Report 18999942 (Version 2)
Quarter: 2021Q1

REPORT INFORMATION
  Report Type: Report from Study
  Country: CO (occurrence: CO)
  Receive Date: 20210311
  Receipt Date: 20210323
  Transmission Date: 20210420
  Serious: Yes (Other)
  Sender: FDA-Public Use
  Company Number: CO-BAYER-2020-246454

PATIENT
  Age: 82 Year
  Sex: Female

DRUGS (5)
  1. NEXAVAR [Suspect]
     Active Substance: SORAFENIB
     Indication: HEPATOCELLULAR CARCINOMA
     Dosage: 400 MG, BID
  2. METFORMIN [Concomitant]
     Active Substance: METFORMIN HYDROCHLORIDE
     Indication: DIABETES MELLITUS
     Dosage: UNK
  3. NEXAVAR [Suspect]
     Active Substance: SORAFENIB
     Indication: HEPATOCELLULAR CARCINOMA
     Dosage: 200 MG, BID
     Route: 048
     Dates: start: 20200810
  4. INSULIN [Concomitant]
     Active Substance: INSULIN NOS
     Indication: DIABETES MELLITUS
     Dosage: UNK
  5. NEXAVAR [Suspect]
     Active Substance: SORAFENIB
     Indication: HEPATOCELLULAR CARCINOMA
     Dosage: DAILY DOSE 600 MG (2 PILLS IN THE MORNING 1 PILL AT NIGHT)
     Route: 048
     Dates: start: 20210226

REACTIONS (19)
  - Burning sensation [Not Recovered/Not Resolved]
  - Hyperkeratosis [Not Recovered/Not Resolved]
  - Hyperkeratosis [Not Recovered/Not Resolved]
  - Pain of skin [Not Recovered/Not Resolved]
  - Visual impairment [Not Recovered/Not Resolved]
  - Acne [Not Recovered/Not Resolved]
  - Dry skin [Not Recovered/Not Resolved]
  - Diarrhoea [Not Recovered/Not Resolved]
  - Hyperkeratosis [Not Recovered/Not Resolved]
  - Impaired work ability [None]
  - Decreased activity [None]
  - Off label use [Not Recovered/Not Resolved]
  - General physical health deterioration [Not Recovered/Not Resolved]
  - Gait disturbance [None]
  - Insomnia [Not Recovered/Not Resolved]
  - Abdominal pain upper [Not Recovered/Not Resolved]
  - Frequent bowel movements [None]
  - Pain in extremity [Not Recovered/Not Resolved]
  - Amnesia [Not Recovered/Not Resolved]

NARRATIVE: CASE EVENT DATE: 202008
